FAERS Safety Report 9311825 (Version 2)
Quarter: 2013Q2

REPORT INFORMATION
  Report Type: Spontaneous
  Country: US (occurrence: US)
  Receive Date: 20130528
  Receipt Date: 20130604
  Transmission Date: 20140414
  Serious: Yes (Other)
  Sender: FDA-Public Use
  Company Number: PHEH2013US011326

PATIENT
  Sex: Female

DRUGS (5)
  1. EXFORGE HCT [Suspect]
     Dosage: 1 DF (320 MG VALS, 10 MG AMLO, 25 MG HCTZ)
     Dates: start: 201210
  2. LISINOPRIL [Suspect]
  3. BENICAR [Suspect]
  4. ALBUTEROL [Suspect]
     Dosage: UNK UKN, UNK
  5. LORTAB [Concomitant]
     Dosage: UNK UKN, UNK

REACTIONS (3)
  - Lower limb fracture [Unknown]
  - Blood pressure increased [Unknown]
  - Cough [Unknown]
